FAERS Safety Report 5310644-0 (Version None)
Quarter: 2007Q1

REPORT INFORMATION
  Report Type: 
  Country: None (occurrence: None)
  Receive Date: 20070201
  Receipt Date: 20061003
  Transmission Date: 20070707
  Serious: No
  Sender: FDA-Public Use
  Company Number: 257981

PATIENT
  Age: 80 Year
  Sex: Female
  Weight: 84.4 kg

DRUGS (5)
  1. LEVEMIR [Suspect]
     Indication: INSULIN-REQUIRING TYPE II DIABETES MELLITUS
     Dosage: 6 IU, QD, SUBCUTANEOUS
     Route: 058
     Dates: start: 20060911
  2. GLIPIZIDE XL (GLIPIZIDE) [Concomitant]
  3. FUROSEMIDE [Concomitant]
  4. METOPROLOL TARTRATE [Concomitant]
  5. COUMADIN [Concomitant]

REACTIONS (1)
  - INJECTION SITE HAEMORRHAGE [None]
